FAERS Safety Report 19401454 (Version 1)
Quarter: 2021Q2

REPORT INFORMATION
  Report Type: Report from Study
  Country: IN (occurrence: IN)
  Receive Date: 20210610
  Receipt Date: 20210610
  Transmission Date: 20210717
  Serious: Yes (Death)
  Sender: FDA-Public Use
  Company Number: NVSC2021IN130335

PATIENT
  Age: 56 Year
  Sex: Male

DRUGS (1)
  1. VOTRIENT [Suspect]
     Active Substance: PAZOPANIB HYDROCHLORIDE
     Indication: RENAL CELL CARCINOMA
     Dosage: 800 MG, QD
     Route: 065
     Dates: start: 20170103

REACTIONS (1)
  - Neoplasm malignant [Fatal]
